FAERS Safety Report 5268152-1 (Version None)
Quarter: 2007Q1

REPORT INFORMATION
  Report Type: 
  Country: None (occurrence: None)
  Receive Date: 20070316
  Receipt Date: 20070316
  Transmission Date: 20070707
  Serious: Yes (Other)
  Sender: FDA-Public Use
  Company Number: None

PATIENT
  Sex: Female
  Weight: 72.5755 kg

DRUGS (2)
  1. AMBIEN [Suspect]
     Indication: INSOMNIA
     Dosage: AMBIEN QHS PO
     Route: 048
     Dates: start: 20060707, end: 20060721
  2. AMBIEN [Suspect]
     Indication: PAIN
     Dosage: AMBIEN QHS PO
     Route: 048
     Dates: start: 20060707, end: 20060721

REACTIONS (2)
  - ABNORMAL SLEEP-RELATED EVENT [None]
  - AMNESIA [None]
